FAERS Safety Report 4321078-X (Version None)
Quarter: 2004Q1

REPORT INFORMATION
  Report Type: 
  Country: None (occurrence: None)
  Receive Date: 20040312
  Receipt Date: 20030307
  Transmission Date: 20041129
  Serious: Yes (Hospitalization)
  Sender: FDA-Public Use
  Company Number: 2002-08-1272

PATIENT

DRUGS (1)
  1. ALBUTEROL SULFATE [Suspect]
     Dosage: UNKNOWN INHALATION

REACTIONS (1)
  - DRUG INEFFECTIVE [None]
